FAERS Safety Report 8717357 (Version 3)
Quarter: 2012Q4

REPORT INFORMATION
  Report Type: 
  Country: US (occurrence: US)
  Receive Date: 20120810
  Receipt Date: 20120907
  Transmission Date: 20130627
  Serious: Yes (Hospitalization)
  Sender: FDA-Public Use
  Company Number: US-CELGENEUS-163-21880-12080655

PATIENT
  Age: 62 None
  Sex: Male

DRUGS (14)
  1. REVLIMID [Suspect]
     Indication: MULTIPLE MYELOMA
     Dosage: 25 Milligram
     Route: 048
     Dates: start: 200811, end: 2008
  2. REVLIMID [Suspect]
     Dosage: 10 Milligram
     Route: 048
     Dates: start: 200906, end: 2010
  3. REVLIMID [Suspect]
     Dosage: 15 Milligram
     Route: 048
     Dates: start: 201005, end: 2012
  4. REVLIMID [Suspect]
     Dosage: 15 Milligram
     Route: 048
     Dates: start: 20120301, end: 2012
  5. ASA [Concomitant]
     Indication: DRUG USE FOR UNKNOWN INDICATION
     Dosage: 81 Milligram
     Route: 048
  6. COUMADIN [Concomitant]
     Indication: AFIB
     Dosage: 7.5 Milligram
     Route: 065
  7. RYTHMOL SR [Concomitant]
     Indication: ARRHYTHMIA
     Dosage: 650 Milligram
     Route: 048
  8. DIOVAN [Concomitant]
     Indication: HYPERTENSION
     Dosage: 320 Milligram
     Route: 048
  9. LIPITOR [Concomitant]
     Indication: HYPERLIPIDEMIA
     Dosage: 10 Milligram
     Route: 048
  10. LOTREL [Concomitant]
     Indication: HYPERTENSION
     Dosage: 60-20 MG
     Route: 065
  11. PROPRANOLOL [Concomitant]
     Indication: HYPERTENSION
     Dosage: 40 Milligram
     Route: 048
  12. PROPRANOLOL [Concomitant]
     Indication: AFIB
  13. POTASSIUM [Concomitant]
     Indication: DRUG USE FOR UNKNOWN INDICATION
     Route: 065
  14. OMEPRAZOLE [Concomitant]
     Indication: GERD
     Dosage: 40 Milligram
     Route: 048

REACTIONS (1)
  - Atrial fibrillation [Recovered/Resolved with Sequelae]
